FAERS Safety Report 23663914 (Version 1)
Quarter: 2024Q1

REPORT INFORMATION
  Report Type: Report from Study
  Country: HN (occurrence: HN)
  Receive Date: 20240322
  Receipt Date: 20240322
  Transmission Date: 20240410
  Serious: Yes (Disabling)
  Sender: FDA-Public Use
  Company Number: HN-MYLANLABS-2024M1026462

PATIENT
  Sex: Female
  Weight: 49.89 kg

DRUGS (1)
  1. LIPITOR [Suspect]
     Active Substance: ATORVASTATIN CALCIUM
     Indication: Blood cholesterol abnormal
     Dosage: 40 MILLIGRAM, QD (ONE TABLET, DAILY)
     Route: 048

REACTIONS (1)
  - Dysarthria [Not Recovered/Not Resolved]
